FAERS Safety Report 10349414 (Version 3)
Quarter: 2014Q3

REPORT INFORMATION
  Report Type: Report from Study
  Country: JP (occurrence: JP)
  Receive Date: 20140730
  Receipt Date: 20140930
  Transmission Date: 20150326
  Serious: Yes (Death, Life-Threatening)
  Sender: FDA-Public Use
  Company Number: JP-009507513-1403JPN013391

PATIENT
  Age: 77 Year
  Sex: Male
  Weight: 52 kg

DRUGS (16)
  1. TEMOZOLOMIDE [Suspect]
     Active Substance: TEMOZOLOMIDE
     Dosage: 200 MG/M2 /DAY, DIVIDED DOSE FREQUENCY UNKNOWN
     Route: 041
     Dates: start: 20120917, end: 20120921
  2. METGLUCO [Concomitant]
     Active Substance: METFORMIN HYDROCHLORIDE
     Dosage: DAILY DOSAGE UNKNOWN
     Route: 051
     Dates: start: 20120808, end: 20121119
  3. AVAPRO [Concomitant]
     Active Substance: IRBESARTAN
     Dosage: DAILY DOSAGE UNKNOWN
     Route: 051
     Dates: start: 20120822, end: 20121129
  4. DECADRON (DEXAMETHASONE SODIUM PHOSPHATE) [Concomitant]
     Active Substance: DEXAMETHASONE SODIUM PHOSPHATE
     Indication: GLIOBLASTOMA MULTIFORME
     Dosage: DAILY DOSAGE UNKNOWN
     Route: 041
     Dates: start: 20120820, end: 20121019
  5. GLACTIV [Concomitant]
     Active Substance: SITAGLIPTIN
     Dosage: DAILY DOSAGE UNKNOWN
     Route: 051
     Dates: start: 20120808, end: 20121119
  6. TEMOZOLOMIDE [Suspect]
     Active Substance: TEMOZOLOMIDE
     Dosage: 200 MG/M2 /DAY, DIVIDED DOSE FREQUENCY UNKNOWN
     Route: 041
     Dates: start: 20121015, end: 20121019
  7. BAKTAR [Concomitant]
     Active Substance: SULFAMETHOXAZOLE\TRIMETHOPRIM
     Indication: ANTIFUNGAL PROPHYLAXIS
     Dosage: DAILY DOSE UNKNOWN
     Route: 051
     Dates: start: 20120808, end: 20121127
  8. TEMODAL [Suspect]
     Active Substance: TEMOZOLOMIDE
     Indication: GLIOBLASTOMA MULTIFORME
     Dosage: DAILY DOSAGE UNKNOWN
     Route: 048
     Dates: start: 20120317, end: 20120723
  9. MAGMITT [Concomitant]
     Active Substance: MAGNESIUM OXIDE
     Indication: PROPHYLAXIS
     Dosage: DAILY DOSAGE UNKNOWN
     Route: 051
     Dates: start: 20120808, end: 20121129
  10. NASEA [Concomitant]
     Active Substance: RAMOSETRON HYDROCHLORIDE
     Indication: GLIOBLASTOMA MULTIFORME
     Dosage: DAILY DOSAGE UNKNOWN
     Route: 041
     Dates: start: 20120820, end: 20121019
  11. TEMOZOLOMIDE [Suspect]
     Active Substance: TEMOZOLOMIDE
     Indication: GLIOBLASTOMA MULTIFORME
     Dosage: 150 MG/M2 /DAY, DIVIDED DOSE FREQUENCY UNKNOWN
     Route: 041
     Dates: start: 20120820, end: 20120824
  12. BIO-THREE [Concomitant]
     Active Substance: HERBALS
     Indication: PROPHYLAXIS
     Dosage: DAILY DOSE UNKNOWN
     Route: 051
     Dates: start: 20120808, end: 20121129
  13. ACTOS [Concomitant]
     Active Substance: PIOGLITAZONE HYDROCHLORIDE
     Dosage: DAILY DOSAGE UNKNOWN
     Route: 051
     Dates: start: 20120808, end: 20121119
  14. ATORVASTATIN CALCIUM. [Concomitant]
     Active Substance: ATORVASTATIN CALCIUM
     Dosage: DAILY DOSE UNKNOWN
     Route: 051
     Dates: start: 20120808, end: 20121129
  15. ROZEREM [Concomitant]
     Active Substance: RAMELTEON
     Indication: PROPHYLAXIS
     Dosage: DAILY DOSE UNKNOWN
     Route: 051
     Dates: start: 20120808, end: 20121129
  16. GASPORT D [Concomitant]
     Indication: PROPHYLAXIS
     Dosage: DAILY DOSAGE UNKNOWN
     Route: 051
     Dates: start: 20120808, end: 20130117

REACTIONS (3)
  - Hyponatraemia [Not Recovered/Not Resolved]
  - Pneumonia [Not Recovered/Not Resolved]
  - Disease progression [Fatal]

NARRATIVE: CASE EVENT DATE: 20120925
